FAERS Safety Report 7348443-0 (Version None)
Quarter: 2011Q1

REPORT INFORMATION
  Report Type: 
  Country: None (occurrence: None)
  Receive Date: 20110311
  Receipt Date: 20110307
  Transmission Date: 20110831
  Serious: Yes (Other)
  Sender: FDA-Public Use
  Company Number: KR-ROXANE LABORATORIES, INC.-2011-RO-00277RO

PATIENT
  Age: 39 Year
  Sex: Male
  Weight: 65 kg

DRUGS (2)
  1. CEFTIZOXIME [Suspect]
     Dosage: 1 G
     Route: 042
  2. MIDAZOLAM [Suspect]
     Indication: PREMEDICATION
     Dosage: 2 MG
     Route: 042

REACTIONS (1)
  - DRUG HYPERSENSITIVITY [None]
